FAERS Safety Report 8848532 (Version 4)
Quarter: 2014Q4

REPORT INFORMATION
  Report Type: Report from Study
  Country: US (occurrence: US)
  Receive Date: 20121018
  Receipt Date: 20141124
  Transmission Date: 20150529
  Serious: Yes (Hospitalization)
  Sender: FDA-Public Use
  Company Number: US-US-EMD SERONO, INC.-7167185

PATIENT
  Sex: Female
  Weight: 110 kg

DRUGS (3)
  1. REBIF [Suspect]
     Active Substance: INTERFERON BETA-1A
     Indication: MULTIPLE SCLEROSIS
     Route: 058
     Dates: start: 20071115
  2. LEVOTHYROXINE [Concomitant]
     Active Substance: LEVOTHYROXINE
     Indication: HYPOTHYROIDISM
  3. AMPYRA [Concomitant]
     Active Substance: DALFAMPRIDINE
     Indication: MULTIPLE SCLEROSIS
     Dates: start: 201409

REACTIONS (8)
  - Hypothyroidism [Unknown]
  - Osteoarthritis [Recovering/Resolving]
  - Blood pressure increased [Recovered/Resolved]
  - Injection site pain [Not Recovered/Not Resolved]
  - Urinary tract infection [Unknown]
  - Procedural pain [Not Recovered/Not Resolved]
  - Somnolence [Recovered/Resolved]
  - Injection site pruritus [Not Recovered/Not Resolved]

NARRATIVE: CASE EVENT DATE: 2011
